FAERS Safety Report 25180614 (Version 1)
Quarter: 2025Q2

REPORT INFORMATION
  Report Type: Spontaneous
  Country: US (occurrence: None)
  Receive Date: 20250409
  Receipt Date: 20250409
  Transmission Date: 20250717
  Serious: No
  Sender: FDA-CTU
  Company Number: None

PATIENT
  Age: 73 Year
  Sex: Female

DRUGS (7)
  1. PROHANCE [Suspect]
     Active Substance: GADOTERIDOL
  2. HYDROCHLOROTHIAZIDE [Concomitant]
     Active Substance: HYDROCHLOROTHIAZIDE
  3. B12 [Concomitant]
  4. VITAMIN D NOS [Concomitant]
     Active Substance: CHOLECALCIFEROL\ERGOCALCIFEROL
  5. CALCIUM [Concomitant]
     Active Substance: CALCIUM
  6. COLLAGEN [Concomitant]
     Active Substance: COLLAGEN
  7. PEPCID [Concomitant]
     Active Substance: FAMOTIDINE

REACTIONS (6)
  - Headache [None]
  - Nausea [None]
  - Heart rate increased [None]
  - Blood pressure increased [None]
  - Feeling hot [None]
  - Dyspepsia [None]

NARRATIVE: CASE EVENT DATE: 20250320
